FAERS Safety Report 22149180 (Version 1)
Quarter: 2023Q1

REPORT INFORMATION
  Report Type: Report from Study
  Country: US (occurrence: US)
  Receive Date: 20230329
  Receipt Date: 20230329
  Transmission Date: 20230417
  Serious: Yes (Other)
  Sender: FDA-Public Use
  Company Number: US-ABBVIE-4706480

PATIENT
  Sex: Female

DRUGS (1)
  1. RINVOQ [Suspect]
     Active Substance: UPADACITINIB
     Indication: Rheumatoid arthritis
     Route: 058
     Dates: start: 20230220

REACTIONS (5)
  - Dyspepsia [Recovered/Resolved]
  - Pruritus [Recovered/Resolved]
  - Weight increased [Recovering/Resolving]
  - Throat tightness [Recovered/Resolved]
  - Dyspnoea [Recovered/Resolved]
